FAERS Safety Report 9367406 (Version 1)
Quarter: 2013Q2

REPORT INFORMATION
  Report Type: Spontaneous
  Country: US (occurrence: US)
  Receive Date: 20130625
  Receipt Date: 20130625
  Transmission Date: 20140414
  Serious: Yes (Other)
  Sender: FDA-Public Use
  Company Number: US-PAR PHARMACEUTICAL, INC-2013SCPR005986

PATIENT
  Sex: 0

DRUGS (1)
  1. METOCLOPRAMIDE [Suspect]
     Indication: IMPAIRED GASTRIC EMPTYING
     Dosage: 10 MG, UNKNOWN
     Route: 048
     Dates: start: 20070219, end: 200907

REACTIONS (8)
  - Memory impairment [Unknown]
  - Fall [Unknown]
  - Urinary incontinence [Unknown]
  - Tardive dyskinesia [Recovering/Resolving]
  - Balance disorder [Unknown]
  - Dysphagia [Unknown]
  - Dry throat [Unknown]
  - Asthenia [Unknown]
